FAERS Safety Report 6754369-3 (Version None)
Quarter: 2010Q2

REPORT INFORMATION
  Report Type: 
  Country: None (occurrence: None)
  Receive Date: 20100520
  Receipt Date: 20090521
  Transmission Date: 20101027
  Serious: Yes (Other)
  Sender: FDA-Public Use
  Company Number: 2009207500

PATIENT
  Age: 56 Year
  Sex: Female
  Weight: 70 kg

DRUGS (7)
  1. PROVERA [Suspect]
     Indication: HORMONE REPLACEMENT THERAPY
     Dosage: ORAL
     Route: 048
     Dates: start: 19900207, end: 19990309
  2. OGEN (ESTROPIPATE) UNKNOWN [Suspect]
     Indication: HORMONE REPLACEMENT THERAPY
     Dates: start: 19960214, end: 19981102
  3. PREMARIN [Suspect]
     Indication: HORMONE REPLACEMENT THERAPY
     Dates: start: 19900207, end: 19960202
  4. CLIMARA [Suspect]
     Indication: HORMONE REPLACEMENT THERAPY
     Dates: start: 19981102, end: 19990309
  5. SYNTHROID [Concomitant]
  6. LEVOTHYROXINE SODIUM [Concomitant]
  7. TRIPHASIL-28 [Concomitant]

REACTIONS (1)
  - BREAST CANCER FEMALE [None]
